FAERS Safety Report 17231068 (Version 4)
Quarter: 2020Q1

REPORT INFORMATION
  Report Type: Spontaneous
  Country: US (occurrence: US)
  Receive Date: 20200103
  Receipt Date: 20200214
  Transmission Date: 20200409
  Serious: Yes (Other)
  Sender: FDA-Public Use
  Company Number: US-PFIZER INC-2018520780

PATIENT
  Age: 56 Year
  Sex: Female
  Weight: 96 kg

DRUGS (8)
  1. LYRICA [Suspect]
     Active Substance: PREGABALIN
     Indication: SPINAL PAIN
     Dosage: 75 MG, 2X/DAY
     Route: 048
  2. WELLBUTRIN [Concomitant]
     Active Substance: BUPROPION HYDROCHLORIDE
     Indication: DEPRESSION
     Dosage: 300 MG, UNK
     Dates: start: 201812, end: 201906
  3. CELEBREX [Concomitant]
     Active Substance: CELECOXIB
     Indication: ARTHRITIS
     Dosage: UNK
     Dates: start: 201812, end: 201907
  4. MENEST [Concomitant]
     Active Substance: ESTROGENS, ESTERIFIED
     Dosage: UNK
     Dates: start: 201812, end: 201907
  5. MENEST [Concomitant]
     Active Substance: ESTROGENS, ESTERIFIED
     Indication: HORMONE REPLACEMENT THERAPY
     Dosage: UNK
     Dates: start: 2018, end: 201906
  6. LYRICA [Suspect]
     Active Substance: PREGABALIN
     Indication: NEURALGIA
     Dosage: 75 MG, 1X/DAY
     Dates: start: 201807, end: 201906
  7. WELLBUTRIN [Concomitant]
     Active Substance: BUPROPION HYDROCHLORIDE
     Indication: SUICIDAL IDEATION
  8. CELEBREX [Concomitant]
     Active Substance: CELECOXIB
     Indication: INTERVERTEBRAL DISC DISORDER
     Dosage: 200 MG, UNK
     Dates: start: 2001, end: 201906

REACTIONS (2)
  - Emotional disorder [Recovered/Resolved]
  - Mental impairment [Unknown]
